FAERS Safety Report 17840327 (Version 2)
Quarter: 2020Q2

REPORT INFORMATION
  Report Type: Spontaneous
  Country: DE (occurrence: DE)
  Receive Date: 20200529
  Receipt Date: 20200605
  Transmission Date: 20200714
  Serious: Yes (Other)
  Sender: FDA-Public Use
  Company Number: DE-DRREDDYS-GER/GER/20/0123425

PATIENT
  Sex: Male

DRUGS (9)
  1. OXYCODON-HCL/NALOXON-HCL BETA 10 MG/5 MG RETARDTABLETTEN [Suspect]
     Active Substance: NALOXONE HYDROCHLORIDE\OXYCODONE HYDROCHLORIDE
     Indication: PRODUCT USED FOR UNKNOWN INDICATION
  2. TARGIN [Suspect]
     Active Substance: NALOXONE HYDROCHLORIDE\OXYCODONE HYDROCHLORIDE
     Dosage: 10 MG AT NOON AND 20 MG FOR THE NIGHT AFTER A FEW YEARS
     Route: 048
  3. OXYCODON-HCL/NALOXON-HCL BETA 5 MG/2,5 MG RETARDTABLETTEN [Suspect]
     Active Substance: NALOXONE HYDROCHLORIDE\OXYCODONE HYDROCHLORIDE
     Dosage: SOMETIMES WITH 15 MG = 10 / 5 +5 / 2.5
  4. TARGIN [Suspect]
     Active Substance: NALOXONE HYDROCHLORIDE\OXYCODONE HYDROCHLORIDE
     Indication: RESTLESS LEGS SYNDROME
     Dosage: (0 - 20 - 20)
     Route: 048
     Dates: start: 202003, end: 202003
  5. PREGABALIN BETA 100 MG HARTKAPSELN [Suspect]
     Active Substance: PREGABALIN
     Indication: RESTLESS LEGS SYNDROME
     Route: 048
     Dates: start: 202001
  6. PRAMIPEXOL [Suspect]
     Active Substance: PRAMIPEXOLE
     Indication: RESTLESS LEGS SYNDROME
     Dates: end: 202003
  7. TARGIN [Suspect]
     Active Substance: NALOXONE HYDROCHLORIDE\OXYCODONE HYDROCHLORIDE
     Dosage: 5 MG AT NOON AND 10 MG FOR THE NIGHT
     Route: 048
  8. PREGABALIN BETA 25 MG HARTKAPSELN [Suspect]
     Active Substance: PREGABALIN
     Indication: RESTLESS LEGS SYNDROME
     Route: 048
     Dates: start: 202001
  9. OXYCODON-HCL/NALOXON-HCL BETA 5 MG/2,5 MG RETARDTABLETTEN [Suspect]
     Active Substance: NALOXONE HYDROCHLORIDE\OXYCODONE HYDROCHLORIDE
     Indication: PRODUCT USED FOR UNKNOWN INDICATION
     Dosage: MOSTLY ONLY WITH 5 / 2.5 MG

REACTIONS (1)
  - Sleep apnoea syndrome [Not Recovered/Not Resolved]

NARRATIVE: CASE EVENT DATE: 202003
